FAERS Safety Report 6041345-1 (Version None)
Quarter: 2009Q1

REPORT INFORMATION
  Report Type: 
  Country: None (occurrence: None)
  Receive Date: 20090116
  Receipt Date: 20081006
  Transmission Date: 20090719
  Serious: No
  Sender: FDA-Public Use
  Company Number: US-BRISTOL-MYERS SQUIBB COMPANY-14359582

PATIENT
  Sex: Female

DRUGS (2)
  1. ABILIFY [Suspect]
     Indication: CYCLOTHYMIC DISORDER
     Dosage: DRUG TAKEN APPROXIMATELY 4-5 DAYS.
  2. ABILIFY [Suspect]
     Indication: BIPOLAR DISORDER
     Dosage: DRUG TAKEN APPROXIMATELY 4-5 DAYS.

REACTIONS (1)
  - NAUSEA [None]
